FAERS Safety Report 18174643 (Version 2)
Quarter: 2020Q4

REPORT INFORMATION
  Report Type: Spontaneous
  Country: US (occurrence: US)
  Receive Date: 20200820
  Receipt Date: 20201124
  Transmission Date: 20210113
  Serious: Yes (Other)
  Sender: FDA-Public Use
  Company Number: US-PFIZER INC-2020319527

PATIENT
  Age: 93 Year
  Sex: Female
  Weight: 74.83 kg

DRUGS (10)
  1. BENADRYL [Concomitant]
     Active Substance: DIPHENHYDRAMINE HYDROCHLORIDE
     Dosage: UNK
  2. PRESERVISION AREDS [Concomitant]
     Active Substance: MINERALS\VITAMINS
     Dosage: UNK
  3. XGEVA [Concomitant]
     Active Substance: DENOSUMAB
     Dosage: UNK (120 MG/1.7 VIAL)
  4. LUMIGAN [Concomitant]
     Active Substance: BIMATOPROST
     Dosage: UNK (0.01 % DROPS)
  5. COMBIGAN [Concomitant]
     Active Substance: BRIMONIDINE TARTRATE\TIMOLOL MALEATE
     Dosage: UNK (0.2%-0.5% DROPS)
  6. ADVIL [IBUPROFEN] [Concomitant]
     Active Substance: IBUPROFEN
     Dosage: UNK
  7. IBRANCE [Suspect]
     Active Substance: PALBOCICLIB
     Indication: BREAST CANCER FEMALE
     Dosage: 100 MG, CYCLIC (DAILY X3 WEEKS, 1 WEEK OFF)
     Route: 048
     Dates: start: 20200708, end: 2020
  8. HYDROCHLOROTHIAZIDE. [Concomitant]
     Active Substance: HYDROCHLOROTHIAZIDE
     Dosage: UNK
  9. FASLODEX [Concomitant]
     Active Substance: FULVESTRANT
     Dosage: UNK
  10. ASPIRIN EC [Concomitant]
     Active Substance: ASPIRIN
     Dosage: UNK (LOW DOSE)

REACTIONS (7)
  - Bladder neoplasm [Unknown]
  - Nocturia [Unknown]
  - White blood cell count decreased [Unknown]
  - Neutropenia [Unknown]
  - Pruritus [Unknown]
  - Blood creatinine abnormal [Unknown]
  - Polydipsia [Unknown]

NARRATIVE: CASE EVENT DATE: 2020
